FAERS Safety Report 12961397 (Version 3)
Quarter: 2016Q4

REPORT INFORMATION
  Report Type: Spontaneous
  Country: US (occurrence: US)
  Receive Date: 20161121
  Receipt Date: 20161223
  Transmission Date: 20170207
  Serious: Yes (Other)
  Sender: FDA-Public Use
  Company Number: PHEH2016US029104

PATIENT
  Age: 67 Year
  Sex: Female

DRUGS (1)
  1. RECLAST [Suspect]
     Active Substance: ZOLEDRONIC ACID
     Indication: PRODUCT USED FOR UNKNOWN INDICATION
     Dosage: UNK
     Route: 065
     Dates: start: 201608

REACTIONS (23)
  - Night sweats [Unknown]
  - Chills [Unknown]
  - Pain [Unknown]
  - Bone pain [Not Recovered/Not Resolved]
  - Back pain [Not Recovered/Not Resolved]
  - Facial pain [Unknown]
  - Feeling abnormal [Unknown]
  - Eye pruritus [Not Recovered/Not Resolved]
  - Pruritus [Unknown]
  - Eye pain [Not Recovered/Not Resolved]
  - Joint swelling [Unknown]
  - Abnormal sensation in eye [Unknown]
  - Dehydration [Unknown]
  - Pyrexia [Unknown]
  - Glaucoma [Unknown]
  - Sensitivity of teeth [Not Recovered/Not Resolved]
  - Arthralgia [Not Recovered/Not Resolved]
  - Fatigue [Unknown]
  - Osteonecrosis of jaw [Unknown]
  - Influenza [Recovered/Resolved]
  - Photophobia [Unknown]
  - Toothache [Not Recovered/Not Resolved]
  - Headache [Unknown]
